FAERS Safety Report 6133179-4 (Version None)
Quarter: 2009Q1

REPORT INFORMATION
  Report Type: 
  Country: None (occurrence: None)
  Receive Date: 20090325
  Receipt Date: 20090325
  Transmission Date: 20090719
  Serious: Yes (Other)
  Sender: FDA-Public Use
  Company Number: None

PATIENT
  Age: 38 Year
  Sex: Female
  Weight: 48.9885 kg

DRUGS (2)
  1. LEVAQUIN [Suspect]
     Indication: SINUSITIS
     Dosage: 500 MG DAILY X 10 DAYS PO
     Route: 048
     Dates: start: 20081105, end: 20081115
  2. LEVAQUIN [Suspect]
     Dosage: 750 MG DAILY X 5 DAYS PO
     Route: 048
     Dates: start: 20081127, end: 20081201

REACTIONS (9)
  - FATIGUE [None]
  - JOINT SWELLING [None]
  - MUSCULOSKELETAL PAIN [None]
  - NO THERAPEUTIC RESPONSE [None]
  - PAIN [None]
  - PAIN IN EXTREMITY [None]
  - PALLANAESTHESIA [None]
  - TENDON DISORDER [None]
  - VISUAL FIELD DEFECT [None]
